FAERS Safety Report 6555493-0 (Version None)
Quarter: 2010Q1

REPORT INFORMATION
  Report Type: 
  Country: None (occurrence: None)
  Receive Date: 20100128
  Receipt Date: 20100118
  Transmission Date: 20100710
  Serious: Yes (Hospitalization, Other)
  Sender: FDA-Public Use
  Company Number: JP-NOVOPROD-302368

PATIENT
  Age: 39 Year
  Sex: Male
  Weight: 62.3 kg

DRUGS (6)
  1. NOVOLIN R [Suspect]
     Indication: TYPE 1 DIABETES MELLITUS
     Dosage: 26-78 IU
     Route: 058
     Dates: start: 20080826, end: 20080907
  2. NOVOLIN R [Suspect]
     Dosage: 78 IU, QD
     Dates: start: 20080826, end: 20080826
  3. NOVOLIN R [Suspect]
     Dosage: 27.5 IU, QD
     Dates: start: 20080827, end: 20080827
  4. NOVOLIN R [Suspect]
     Dosage: 26 IU, QD
     Dates: start: 20080828, end: 20080828
  5. NOVOLIN R [Suspect]
     Dosage: 30 IU, UNK
     Dates: start: 20080829, end: 20080829
  6. FLUID [Concomitant]
     Route: 042

REACTIONS (5)
  - BLOOD GLUCOSE INCREASED [None]
  - GLYCOSYLATED HAEMOGLOBIN INCREASED [None]
  - HEPATIC FUNCTION ABNORMAL [None]
  - HEPATIC STEATOSIS [None]
  - HEPATOMEGALY [None]
